FAERS Safety Report 13792822 (Version 4)
Quarter: 2018Q1

REPORT INFORMATION
  Report Type: Spontaneous
  Country: IT (occurrence: IT)
  Receive Date: 20170726
  Receipt Date: 20180331
  Transmission Date: 20180508
  Serious: Yes (Life-Threatening, Hospitalization, Other)
  Sender: FDA-Public Use
  Company Number: IT-AUROBINDO-AUR-APL-2017-37539

PATIENT
  Age: 62 Year
  Sex: Male

DRUGS (4)
  1. CIPROFLOXACIN. [Suspect]
     Active Substance: CIPROFLOXACIN
     Indication: ANTIBIOTIC PROPHYLAXIS
     Dosage: ()
     Dates: start: 201604, end: 201604
  2. CEFTAZIDIME. [Suspect]
     Active Substance: CEFTAZIDIME
     Indication: PROPHYLAXIS URINARY TRACT INFECTION
     Dosage: ()
     Route: 065
     Dates: start: 201604, end: 201604
  3. METRONIDAZOLE. [Suspect]
     Active Substance: METRONIDAZOLE
     Indication: DIARRHOEA
     Dosage: 500 MG, EVERY SIX HOURS
     Dates: start: 201605, end: 201605
  4. METRONIDAZOLE. [Suspect]
     Active Substance: METRONIDAZOLE
     Indication: CLOSTRIDIUM DIFFICILE COLITIS

REACTIONS (12)
  - Coma [Recovered/Resolved]
  - Septic shock [Recovered/Resolved]
  - Listeriosis [Recovered/Resolved]
  - Meningitis [Recovered/Resolved]
  - Pyrexia [Unknown]
  - Pseudomembranous colitis [Recovered/Resolved]
  - Bacteraemia [Recovered/Resolved]
  - Diarrhoea [Recovered/Resolved]
  - Confusional state [Unknown]
  - Infection [Unknown]
  - Colitis [Unknown]
  - Clostridium difficile colitis [Recovered/Resolved]

NARRATIVE: CASE EVENT DATE: 2016
